FAERS Safety Report 14990893 (Version 1)
Quarter: 2018Q2

REPORT INFORMATION
  Report Type: Spontaneous
  Country: US (occurrence: US)
  Receive Date: 20180521
  Receipt Date: 20180521
  Transmission Date: 20180711
  Serious: Yes (Life-Threatening, Disabling)
  Sender: FDA-Public Use
  Company Number: None

PATIENT
  Age: 54 Year
  Sex: Female
  Weight: 98.1 kg

DRUGS (2)
  1. OXYBUTYNIN 5MG [Suspect]
     Active Substance: OXYBUTYNIN
     Indication: INCONTINENCE
     Dosage: ?          QUANTITY:60 DF DOSAGE FORM;?
     Route: 048
     Dates: start: 20180423, end: 20180517
  2. VITAMIN D3 [Concomitant]
     Active Substance: CHOLECALCIFEROL

REACTIONS (28)
  - Lung disorder [None]
  - Vision blurred [None]
  - Arthropathy [None]
  - Dry eye [None]
  - Diarrhoea [None]
  - Rhinitis [None]
  - Weight increased [None]
  - Chest discomfort [None]
  - Swelling face [None]
  - Cough [None]
  - Pulmonary oedema [None]
  - Dry throat [None]
  - Headache [None]
  - Therapy cessation [None]
  - Dyspnoea [None]
  - Vomiting [None]
  - Dyspepsia [None]
  - Dry mouth [None]
  - Paraesthesia [None]
  - Peripheral swelling [None]
  - Dizziness [None]
  - Nervousness [None]
  - Hyperchlorhydria [None]
  - Urinary tract infection [None]
  - Nightmare [None]
  - Constipation [None]
  - Drug withdrawal syndrome [None]
  - Muscle twitching [None]

NARRATIVE: CASE EVENT DATE: 20180517
